FAERS Safety Report 8232872-7 (Version None)
Quarter: 2012Q1

REPORT INFORMATION
  Report Type: 
  Country: None (occurrence: None)
  Receive Date: 20120324
  Receipt Date: 20120319
  Transmission Date: 20120608
  Serious: Yes (Life-Threatening, Hospitalization)
  Sender: FDA-Public Use
  Company Number: FR-ASTRAZENECA-2012SE19031

PATIENT
  Age: 82 Year
  Sex: Female

DRUGS (6)
  1. CANDESARTAN CILEXETIL AND HYDROCHLOROTHIAZIDE [Suspect]
     Route: 048
  2. LEVOTHYROXINE SODIUM [Concomitant]
  3. RISPERDAL [Concomitant]
  4. ATHYMIL [Concomitant]
  5. EZETIMIBE [Concomitant]
  6. IMOVANE [Concomitant]

REACTIONS (3)
  - HYPOKALAEMIA [None]
  - SUICIDE ATTEMPT [None]
  - INTENTIONAL OVERDOSE [None]
